FAERS Safety Report 4383442-2 (Version None)
Quarter: 2004Q2

REPORT INFORMATION
  Report Type: 
  Country: None (occurrence: None)
  Receive Date: 20040618
  Receipt Date: 20040602
  Transmission Date: 20050107
  Serious: Yes (Other)
  Sender: FDA-Public Use
  Company Number: JP_040603291

PATIENT
  Age: 53 Year
  Sex: Male

DRUGS (6)
  1. ONCOVIN [Suspect]
     Indication: LYMPHOMA
     Dates: start: 20030808, end: 20030815
  2. CYCLOPHOSPHAMIDE [Concomitant]
  3. DOXORUBICIN HYDROCHLORIDE [Concomitant]
  4. PREDNISOLONE [Concomitant]
  5. TPN [Concomitant]
  6. CEFCAPENE PIVOXIL HYDROCHLORIDE [Concomitant]

REACTIONS (5)
  - BONE MARROW DEPRESSION [None]
  - CLOSTRIDIUM COLITIS [None]
  - DIARRHOEA [None]
  - ENTEROCOLITIS [None]
  - PYREXIA [None]
